FAERS Safety Report 9741343 (Version 2)
Quarter: 2013Q4

REPORT INFORMATION
  Report Type: Spontaneous
  Country: US (occurrence: US)
  Receive Date: 20131209
  Receipt Date: 20131209
  Transmission Date: 20140711
  Serious: No
  Sender: FDA-Public Use
  Company Number: US-GILEAD-2013-0085122

PATIENT
  Age: 39 Year
  Sex: Female
  Weight: 70 kg

DRUGS (5)
  1. STRIBILD [Suspect]
     Indication: HIV INFECTION
     Dosage: UNK
     Route: 065
     Dates: start: 201309
  2. VALTREX [Concomitant]
     Indication: HERPES SIMPLEX
     Dosage: UNK
  3. VITAMIN B [Concomitant]
     Dosage: UNK
  4. PRENATAL VITAMINS                  /07499601/ [Concomitant]
     Dosage: UNK
  5. DHA [Concomitant]
     Dosage: UNK

REACTIONS (1)
  - Pregnancy [Not Recovered/Not Resolved]
